FAERS Safety Report 14369251 (Version 2)
Quarter: 2018Q2

REPORT INFORMATION
  Report Type: Spontaneous
  Country: US (occurrence: US)
  Receive Date: 20180109
  Receipt Date: 20180420
  Transmission Date: 20180711
  Serious: Yes (Other)
  Sender: FDA-Public Use
  Company Number: US-BRISTOL-MYERS SQUIBB COMPANY-BMS-2018-000698

PATIENT
  Sex: Male
  Weight: 49.89 kg

DRUGS (2)
  1. OXYCODONE [Concomitant]
     Active Substance: OXYCODONE
     Indication: CANCER PAIN
     Route: 065
  2. OPDIVO [Suspect]
     Active Substance: NIVOLUMAB
     Indication: RECTAL CANCER
     Dosage: 240 MG, Q2WK
     Route: 042
     Dates: start: 201702, end: 201705

REACTIONS (5)
  - Product use in unapproved indication [Unknown]
  - Nervous system disorder [Not Recovered/Not Resolved]
  - Polyneuropathy [Not Recovered/Not Resolved]
  - Injury [Not Recovered/Not Resolved]
  - Muscular weakness [Not Recovered/Not Resolved]
